FAERS Safety Report 6890337-9 (Version None)
Quarter: 2010Q3

REPORT INFORMATION
  Report Type: 
  Country: None (occurrence: None)
  Receive Date: 20100730
  Receipt Date: 20080928
  Transmission Date: 20110219
  Serious: No
  Sender: FDA-Public Use
  Company Number: US-PFIZER INC-2008082141

PATIENT
  Sex: Female
  Weight: 72.727 kg

DRUGS (14)
  1. LIPITOR [Suspect]
     Indication: BLOOD CHOLESTEROL INCREASED
     Dates: end: 20080922
  2. TRICOR [Concomitant]
     Indication: HYPERTENSION
  3. VITAMINS [Concomitant]
  4. FISH OIL [Concomitant]
  5. FLAXSEED OIL [Concomitant]
  6. AVALIDE [Concomitant]
     Indication: HYPERTENSION
  7. NIACIN [Concomitant]
  8. MULTI-VITAMINS [Concomitant]
  9. CHONDROITIN/GLUCOSAMINE [Concomitant]
  10. CALCIUM [Concomitant]
  11. MAGNESIUM [Concomitant]
  12. ZINC [Concomitant]
  13. FOLIC ACID [Concomitant]
  14. HERBAL PREPARATION [Concomitant]

REACTIONS (4)
  - CHEST DISCOMFORT [None]
  - FATIGUE [None]
  - MUSCLE SPASMS [None]
  - PAIN IN EXTREMITY [None]
